FAERS Safety Report 5055467-5 (Version None)
Quarter: 2006Q3

REPORT INFORMATION
  Report Type: 
  Country: None (occurrence: None)
  Receive Date: 20060714
  Receipt Date: 20060627
  Transmission Date: 20061208
  Serious: Yes (Other)
  Sender: FDA-Public Use
  Company Number: 2006RR-02834

PATIENT
  Sex: Male
  Weight: 70 kg

DRUGS (2)
  1. ISOTRETINOIN [Suspect]
     Dosage: SEE IMAGE
  2. PREDNISOLONE [Concomitant]

REACTIONS (3)
  - ANGIONEUROTIC OEDEMA [None]
  - CAPILLARY LEAK SYNDROME [None]
  - FACE OEDEMA [None]
